FAERS Safety Report 25059006 (Version 1)
Quarter: 2025Q1

REPORT INFORMATION
  Report Type: Spontaneous
  Country: US (occurrence: US)
  Receive Date: 20250310
  Receipt Date: 20250310
  Transmission Date: 20250408
  Serious: Yes (Life-Threatening, Other)
  Sender: CHEPLAPHARM
  Company Number: US-CHEPLA-2025002940

PATIENT
  Age: 2 Year
  Sex: Male
  Weight: 11 kg

DRUGS (10)
  1. GANCICLOVIR [Suspect]
     Active Substance: GANCICLOVIR
     Indication: Cytomegalovirus infection reactivation
     Dosage: DAILY DOSE: 10 MILLIGRAM/KG
  2. VALGANCICLOVIR [Suspect]
     Active Substance: VALGANCICLOVIR
     Indication: Cytomegalovirus infection reactivation
     Dosage: DAY PLUS 140?DAILY DOSE: 16 MILLIGRAM/KG
     Route: 048
  3. FOSCARNET [Suspect]
     Active Substance: FOSCARNET
     Indication: Cytomegalovirus infection reactivation
     Dosage: DAY PLUS 17?DAILY DOSE: 180 MILLIGRAM/KG
  4. FOSCARNET [Suspect]
     Active Substance: FOSCARNET
     Indication: Cytomegalovirus infection reactivation
     Dosage: DAY PLUS 101?DAILY DOSE: 90 MILLIGRAM/KG
  5. BLINATUMOMAB [Concomitant]
     Active Substance: BLINATUMOMAB
  6. LETERMOVIR [Concomitant]
     Active Substance: LETERMOVIR
     Indication: Cytomegalovirus infection reactivation
     Dosage: 240 MG DAILY (22 MG/KG/DAY)/DOSE BY CRUSHING AND MIXING THE TABLET WITH STERILE WATER AND ADMINIS...
     Route: 048
  7. BASILIXIMAB [Concomitant]
     Active Substance: BASILIXIMAB
  8. INFLIXIMAB [Concomitant]
     Active Substance: INFLIXIMAB
  9. VEDOLIZUMAB [Concomitant]
     Active Substance: VEDOLIZUMAB
  10. TACROLIMUS [Concomitant]
     Active Substance: TACROLIMUS

REACTIONS (6)
  - Acute graft versus host disease [Unknown]
  - Leukaemia recurrent [Unknown]
  - Pancytopenia [Unknown]
  - Drug resistance [Unknown]
  - Off label use [Unknown]
  - Off label use [Unknown]
